FAERS Safety Report 10537488 (Version 1)
Quarter: 2014Q4

REPORT INFORMATION
  Report Type: Spontaneous
  Country: CA (occurrence: None)
  Receive Date: 20141022
  Receipt Date: 20141022
  Transmission Date: 20150529
  Serious: Yes (Hospitalization)
  Sender: FDA-Public Use
  Company Number: None

PATIENT
  Age: 38 Year
  Sex: Female
  Weight: 106.7 kg

DRUGS (2)
  1. IDARUBICIN [Suspect]
     Active Substance: IDARUBICIN
     Dates: end: 20140701
  2. CYTARABINE. [Suspect]
     Active Substance: CYTARABINE
     Dates: end: 20140701

REACTIONS (8)
  - Cardiac arrest [None]
  - Hypoxia [None]
  - Multi-organ failure [None]
  - Escherichia sepsis [None]
  - Acute respiratory distress syndrome [None]
  - Febrile neutropenia [None]
  - Hypotension [None]
  - Enterocolitis [None]

NARRATIVE: CASE EVENT DATE: 20140707
